FAERS Safety Report 19416133 (Version 1)
Quarter: 2021Q2

REPORT INFORMATION
  Report Type: Spontaneous
  Country: US (occurrence: US)
  Receive Date: 20210615
  Receipt Date: 20210615
  Transmission Date: 20210717
  Serious: Yes (Other)
  Sender: FDA-Public Use
  Company Number: US-MSNLABS-2021MSNLIT00173

PATIENT

DRUGS (3)
  1. CISPLATIN. [Suspect]
     Active Substance: CISPLATIN
     Indication: NASAL SINUS CANCER
     Route: 065
  2. PACLITAXEL INJECTION 300 MG/50 ML [Suspect]
     Active Substance: PACLITAXEL
     Indication: NASAL SINUS CANCER
     Route: 065
  3. 5?FLUOROURACIL [Suspect]
     Active Substance: FLUOROURACIL
     Indication: NASAL SINUS CANCER
     Route: 065

REACTIONS (3)
  - Premature delivery [Unknown]
  - Exposure during pregnancy [Unknown]
  - Cerebrospinal fluid leakage [Unknown]
